FAERS Safety Report 5026460-3 (Version None)
Quarter: 2006Q2

REPORT INFORMATION
  Report Type: 
  Country: None (occurrence: None)
  Receive Date: 20060615
  Receipt Date: 20060614
  Transmission Date: 20061013
  Serious: Yes (Death)
  Sender: FDA-Public Use
  Company Number: 2006PK01275

PATIENT
  Age: 82 Year
  Sex: Male

DRUGS (1)
  1. ATACAND [Suspect]

REACTIONS (1)
  - PNEUMONIA [None]
